FAERS Safety Report 10227201 (Version 1)
Quarter: 2014Q2

REPORT INFORMATION
  Report Type: Spontaneous
  Country: US (occurrence: US)
  Receive Date: 20140610
  Receipt Date: 20140610
  Transmission Date: 20141212
  Serious: No
  Sender: FDA-Public Use
  Company Number: US-TEVA-468132USA

PATIENT
  Age: 43 Year
  Sex: Female

DRUGS (1)
  1. LEVETIRACETAM [Suspect]
     Dosage: 1500 MILLIGRAM DAILY;

REACTIONS (5)
  - Amnesia [Not Recovered/Not Resolved]
  - Asthenia [Not Recovered/Not Resolved]
  - Fatigue [Not Recovered/Not Resolved]
  - Headache [Not Recovered/Not Resolved]
  - Agitation [Not Recovered/Not Resolved]
